FAERS Safety Report 15302983 (Version 15)
Quarter: 2020Q2

REPORT INFORMATION
  Report Type: Spontaneous
  Country: GB (occurrence: GB)
  Receive Date: 20180821
  Receipt Date: 20200409
  Transmission Date: 20200713
  Serious: Yes (Hospitalization, Other)
  Sender: FDA-Public Use
  Company Number: GB-MYLANLABS-2018M1061024

PATIENT
  Age: 23 Year
  Sex: Female

DRUGS (3)
  1. CLOZARIL [Suspect]
     Active Substance: CLOZAPINE
     Dosage: 250 MILLIGRAM
     Route: 048
     Dates: start: 2018
  2. CLOZARIL [Suspect]
     Active Substance: CLOZAPINE
     Dosage: UNK
     Route: 048
     Dates: start: 20190621
  3. CLOZARIL [Suspect]
     Active Substance: CLOZAPINE
     Indication: SCHIZOPHRENIA
     Dosage: UNK
     Route: 048
     Dates: start: 20180730

REACTIONS (10)
  - Malaise [Unknown]
  - Neutrophil count increased [Unknown]
  - Leukocytosis [Not Recovered/Not Resolved]
  - Vomiting [Unknown]
  - Pneumonia [Unknown]
  - Differential white blood cell count abnormal [Recovering/Resolving]
  - Eosinophilia [Recovering/Resolving]
  - Asthma [Unknown]
  - Infection [Unknown]
  - Platelet count increased [Unknown]

NARRATIVE: CASE EVENT DATE: 2018
